FAERS Safety Report 10143358 (Version 1)
Quarter: 2014Q2

REPORT INFORMATION
  Report Type: Spontaneous
  Country: BR (occurrence: BR)
  Receive Date: 20140430
  Receipt Date: 20140430
  Transmission Date: 20141212
  Serious: Yes (Hospitalization)
  Sender: FDA-Public Use
  Company Number: BR-ASTRAZENECA-2014SE28707

PATIENT
  Sex: Female
  Weight: 50 kg

DRUGS (8)
  1. ALENIA [Suspect]
     Indication: ASTHMA
     Route: 055
  2. OMEPRAZOLE [Suspect]
     Indication: GASTRITIS
     Dosage: DAILY
     Route: 048
     Dates: start: 2013
  3. OMEPRAZOLE [Suspect]
     Indication: HELICOBACTER INFECTION
     Dosage: DAILY
     Route: 048
     Dates: start: 2013
  4. BRILINTA [Suspect]
     Indication: INFARCTION
     Route: 048
     Dates: start: 20130326
  5. ALDACTONE [Concomitant]
     Route: 048
  6. ZELOK [Concomitant]
     Indication: HYPERTENSION
     Route: 048
  7. BEROTEC [Concomitant]
     Indication: ASTHMA
  8. UNSPECIFIED ANTIALLERGIC [Concomitant]
     Indication: BRONCHITIS
     Route: 048

REACTIONS (2)
  - Infarction [Recovered/Resolved]
  - Skin discolouration [Not Recovered/Not Resolved]
